FAERS Safety Report 8309285-2 (Version None)
Quarter: 2012Q2

REPORT INFORMATION
  Report Type: 
  Country: None (occurrence: None)
  Receive Date: 20120424
  Receipt Date: 20120412
  Transmission Date: 20120825
  Serious: Yes (Other)
  Sender: FDA-Public Use
  Company Number: BR-AMGEN-BRASP2012009651

PATIENT
  Age: 34 Year
  Sex: Female
  Weight: 72 kg

DRUGS (14)
  1. FAMOTIDINA [Concomitant]
     Dosage: UNK
  2. ACETAMINOPHEN [Concomitant]
     Dosage: 500 MG, 1X/DAY
  3. HYDROCHLOROTHIAZIDE [Concomitant]
     Indication: HYPERTENSION
     Dosage: 25 MG, 1X/DAY
  4. ENBREL [Suspect]
     Dosage: UNK
     Route: 058
     Dates: start: 20120101
  5. PREDNISONE [Concomitant]
     Dosage: 5 MG, 1X/DAY
  6. FOLIC ACID [Concomitant]
     Dosage: 5MG
  7. COLECALCIFEROL [Concomitant]
     Dosage: 500 MG, 1X/DAY
  8. OMEPRAZOLE [Concomitant]
     Indication: ABDOMINAL DISCOMFORT
     Dosage: 20 MG, 1X/DAY
  9. SERTRALINE HYDROCHLORIDE [Concomitant]
     Dosage: 50 MG, 1X/DAY
  10. ENBREL [Suspect]
     Indication: RHEUMATOID ARTHRITIS
     Dosage: 50 MG, ONCE WEEKLY
     Route: 058
     Dates: start: 20111201, end: 20120101
  11. CALCIUM CARBONATE [Concomitant]
     Dosage: 1250 MG, 1X/DAY
  12. ATENOLOL [Concomitant]
     Indication: HYPERTENSION
     Dosage: 25 MG, EVERY 12 HOURS
  13. CYCLOBENZAPRINE [Concomitant]
     Dosage: 40MG
  14. METHOTREXATE [Concomitant]
     Dosage: 25 MG, ONCE WEEKLY

REACTIONS (3)
  - OROPHARYNGEAL PAIN [None]
  - COUGH [None]
  - ANAL FISSURE [None]
